FAERS Safety Report 22118479 (Version 1)
Quarter: 2023Q1

REPORT INFORMATION
  Report Type: Spontaneous
  Country: US (occurrence: US)
  Receive Date: 20230321
  Receipt Date: 20230321
  Transmission Date: 20230418
  Serious: No
  Sender: FDA-Public Use
  Company Number: US-RECORDATI-2023001572

PATIENT

DRUGS (7)
  1. OSILODROSTAT [Suspect]
     Active Substance: OSILODROSTAT
     Indication: Cushing^s syndrome
     Dosage: 2 MILLIGRAM, BID
  2. OSILODROSTAT [Suspect]
     Active Substance: OSILODROSTAT
     Indication: Lung adenocarcinoma stage III
  3. OSILODROSTAT [Suspect]
     Active Substance: OSILODROSTAT
     Indication: Off label use
  4. OSIMERTINIB [Concomitant]
     Active Substance: OSIMERTINIB
     Indication: Cushing^s syndrome
     Dosage: 80 MILLIGRAM PER DAY
  5. OSIMERTINIB [Concomitant]
     Active Substance: OSIMERTINIB
     Indication: Lung adenocarcinoma stage III
  6. ERLOTINIB [Concomitant]
     Active Substance: ERLOTINIB
     Indication: Cushing^s syndrome
     Dosage: UNK
  7. ERLOTINIB [Concomitant]
     Active Substance: ERLOTINIB
     Indication: Lung adenocarcinoma stage III

REACTIONS (1)
  - Drug effective for unapproved indication [Recovered/Resolved]
